FAERS Safety Report 12668619 (Version 2)
Quarter: 2016Q3

REPORT INFORMATION
  Report Type: Spontaneous
  Country: US (occurrence: US)
  Receive Date: 20160819
  Receipt Date: 20160902
  Transmission Date: 20161109
  Serious: Yes (Death, Hospitalization, Other)
  Sender: FDA-Public Use
  Company Number: US-BRISTOL-MYERS SQUIBB COMPANY-BMS-2016-067235

PATIENT
  Sex: Male

DRUGS (1)
  1. OPDIVO [Suspect]
     Active Substance: NIVOLUMAB
     Indication: HEPATOCELLULAR CARCINOMA
     Dosage: 3 MG/KG, Q2WK
     Route: 042

REACTIONS (6)
  - Malignant neoplasm progression [Fatal]
  - Portal hypertensive gastropathy [Fatal]
  - Transfusion [Not Recovered/Not Resolved]
  - Oesophageal varices haemorrhage [Fatal]
  - Product use issue [Unknown]
  - Hepatitis C [Not Recovered/Not Resolved]
